FAERS Safety Report 16425810 (Version 1)
Quarter: 2019Q2

REPORT INFORMATION
  Report Type: Spontaneous
  Country: BR (occurrence: BR)
  Receive Date: 20190613
  Receipt Date: 20190613
  Transmission Date: 20190711
  Serious: Yes (Other)
  Sender: FDA-Public Use
  Company Number: BR-BAYER-2019-112686

PATIENT
  Age: 40 Year
  Sex: Female

DRUGS (1)
  1. ULTRAVIST [Suspect]
     Active Substance: IOPROMIDE
     Indication: COMPUTERISED TOMOGRAM
     Dosage: 105 ML, ONCE
     Route: 042
     Dates: start: 20190413, end: 20190413

REACTIONS (6)
  - Lip oedema [None]
  - Hemianaesthesia [None]
  - Hyperaemia [None]
  - Urticaria [None]
  - Pruritus [None]
  - Hypoaesthesia oral [None]

NARRATIVE: CASE EVENT DATE: 20190413
